FAERS Safety Report 24598683 (Version 1)
Quarter: 2024Q4

REPORT INFORMATION
  Report Type: Spontaneous
  Country: US (occurrence: US)
  Receive Date: 20241110
  Receipt Date: 20241110
  Transmission Date: 20250115
  Serious: No
  Sender: SANOFI AVENTIS
  Company Number: US-SA-2024SA311793

PATIENT
  Age: 9 Year
  Sex: Male
  Weight: 45.09 kg

DRUGS (2)
  1. DUPIXENT [Suspect]
     Active Substance: DUPILUMAB
     Dosage: 400.000MG QD
     Route: 058
  2. DUPIXENT [Suspect]
     Active Substance: DUPILUMAB
     Dosage: 200 MG, QOW

REACTIONS (1)
  - Malaise [Recovering/Resolving]

NARRATIVE: CASE EVENT DATE: 20241001
